FAERS Safety Report 22283793 (Version 3)
Quarter: 2023Q2

REPORT INFORMATION
  Report Type: Spontaneous
  Country: US (occurrence: US)
  Receive Date: 20230504
  Receipt Date: 20230509
  Transmission Date: 20230721
  Serious: No
  Sender: FDA-Public Use
  Company Number: US-PFIZER INC-202300176567

PATIENT
  Age: 73 Year
  Sex: Female
  Weight: 47.166 kg

DRUGS (1)
  1. ESTRING [Suspect]
     Active Substance: ESTRADIOL
     Dosage: 0.45, EVERY 3 MONTHS

REACTIONS (2)
  - Off label use [Unknown]
  - Vulvovaginal dryness [Unknown]
